FAERS Safety Report 21156787 (Version 1)
Quarter: 2022Q3

REPORT INFORMATION
  Report Type: Spontaneous
  Country: CN (occurrence: CN)
  Receive Date: 20220801
  Receipt Date: 20220801
  Transmission Date: 20221027
  Serious: Yes (Life-Threatening)
  Sender: FDA-Public Use
  Company Number: CN-PFIZER INC-PV202200032863

PATIENT
  Age: 2 Year
  Sex: Male
  Weight: 14 kg

DRUGS (5)
  1. CYTARABINE [Suspect]
     Active Substance: CYTARABINE
     Indication: Neoplasm
     Dosage: 1150 MG, 2X/DAY
     Route: 041
     Dates: start: 20220615, end: 20220618
  2. CYTARABINE [Suspect]
     Active Substance: CYTARABINE
     Indication: Acute myeloid leukaemia
  3. MITOXANTRONE HYDROCHLORIDE [Suspect]
     Active Substance: MITOXANTRONE HYDROCHLORIDE
     Indication: Neoplasm
     Dosage: 5 MG, 1X/DAY
     Route: 041
     Dates: start: 20220615, end: 20220617
  4. MITOXANTRONE HYDROCHLORIDE [Suspect]
     Active Substance: MITOXANTRONE HYDROCHLORIDE
     Indication: Acute myeloid leukaemia
  5. DEXRAZOXANE [Concomitant]
     Active Substance: DEXRAZOXANE
     Indication: Prophylaxis
     Dosage: 250 MG, 1X/DAY
     Route: 041
     Dates: start: 20220615, end: 20220617

REACTIONS (6)
  - Myelosuppression [Recovering/Resolving]
  - Agranulocytosis [Recovering/Resolving]
  - Pyrexia [Recovering/Resolving]
  - Diarrhoea [Recovering/Resolving]
  - Vomiting [Unknown]
  - Abdominal pain [Unknown]

NARRATIVE: CASE EVENT DATE: 20220621
